FAERS Safety Report 13665222 (Version 1)
Quarter: 2017Q2

REPORT INFORMATION
  Report Type: Spontaneous
  Country: US (occurrence: US)
  Receive Date: 20170619
  Receipt Date: 20170619
  Transmission Date: 20170830
  Serious: Yes (Other)
  Sender: FDA-Public Use
  Company Number: None

PATIENT
  Age: 69 Year
  Sex: Female
  Weight: 83.7 kg

DRUGS (15)
  1. CLOPIDOGEL [Concomitant]
  2. LORAZEPAM. [Concomitant]
     Active Substance: LORAZEPAM
  3. SYNTHROID [Concomitant]
     Active Substance: LEVOTHYROXINE SODIUM
  4. SPIRONOLACTONE. [Concomitant]
     Active Substance: SPIRONOLACTONE
  5. KLOR-CON [Concomitant]
     Active Substance: POTASSIUM CHLORIDE
  6. GABAPENTIN. [Concomitant]
     Active Substance: GABAPENTIN
  7. ESCITALOPRAM [Concomitant]
     Active Substance: ESCITALOPRAM OXALATE
  8. CALCIUM [Concomitant]
     Active Substance: CALCIUM
  9. OXYCODONE ER [Suspect]
     Active Substance: OXYCODONE
     Indication: BACK PAIN
     Route: 048
     Dates: start: 20170501, end: 20170530
  10. FISH OIL [Concomitant]
     Active Substance: FISH OIL
  11. ESOMEPRAZOLE [Concomitant]
     Active Substance: ESOMEPRAZOLE
  12. DOXEPIN [Concomitant]
     Active Substance: DOXEPIN
  13. FUROSEMIDE. [Concomitant]
     Active Substance: FUROSEMIDE
  14. ESTRADIOL. [Concomitant]
     Active Substance: ESTRADIOL
  15. TOLTERODINE ER [Concomitant]

REACTIONS (2)
  - Analgesic drug level below therapeutic [None]
  - Pain [None]

NARRATIVE: CASE EVENT DATE: 20170619
